FAERS Safety Report 13549696 (Version 1)
Quarter: 2017Q2

REPORT INFORMATION
  Report Type: Spontaneous
  Country: US (occurrence: US)
  Receive Date: 20170516
  Receipt Date: 20170516
  Transmission Date: 20170830
  Serious: No
  Sender: FDA-Public Use
  Company Number: US-TEVA-735250ACC

PATIENT
  Sex: Female

DRUGS (1)
  1. ACTAVIS ACETAMINOPHEN W/OXYCODONE [Suspect]
     Active Substance: ACETAMINOPHEN\OXYCODONE HYDROCHLORIDE
     Route: 065

REACTIONS (4)
  - Pharyngeal disorder [Unknown]
  - Tongue disorder [Unknown]
  - Pruritus [Unknown]
  - Headache [Unknown]
